FAERS Safety Report 10733861 (Version 3)
Quarter: 2015Q2

REPORT INFORMATION
  Report Type: Spontaneous
  Country: US (occurrence: US)
  Receive Date: 20150123
  Receipt Date: 20150619
  Transmission Date: 20150821
  Serious: Yes (Other)
  Sender: FDA-Public Use
  Company Number: US-ASTRAZENECA-2015SE06397

PATIENT
  Age: 74 Year
  Sex: Female
  Weight: 67 kg

DRUGS (31)
  1. NEXIUM 24HR [Suspect]
     Active Substance: ESOMEPRAZOLE MAGNESIUM
     Indication: GASTROOESOPHAGEAL REFLUX DISEASE
     Route: 048
     Dates: start: 201408
  2. NEXIUM [Suspect]
     Active Substance: ESOMEPRAZOLE MAGNESIUM
     Indication: DYSPEPSIA
     Route: 048
     Dates: start: 20130419, end: 2014
  3. B-SUPER COMPLEX [Suspect]
     Active Substance: VITAMINS
     Indication: TINNITUS
     Dosage: EVERY DAY
     Route: 065
  4. ZINC [Concomitant]
     Active Substance: ZINC\ZINC CHLORIDE
     Indication: IMMUNISATION
  5. TRIAMCINOLONE ACETONIDE. [Concomitant]
     Active Substance: TRIAMCINOLONE ACETONIDE
     Indication: PRURITUS
     Dosage: 0.1 %, AS NEEDED
  6. VESICARE [Concomitant]
     Active Substance: SOLIFENACIN SUCCINATE
     Indication: MOTION SICKNESS
     Dosage: 5 MG, AS NEEDED
  7. AMLODIPINE [Concomitant]
     Active Substance: AMLODIPINE BESYLATE
     Indication: HYPERTENSION
  8. ALLERTEC [Concomitant]
     Indication: HYPERSENSITIVITY
  9. MAGNESIUM [Concomitant]
     Active Substance: MAGNESIUM
     Indication: MUSCLE INJURY
  10. MELATONIN [Concomitant]
     Active Substance: MELATONIN
     Indication: SLEEP DISORDER
  11. SELENIUM [Concomitant]
     Active Substance: SELENIUM
     Indication: SLEEP DISORDER
  12. METOPROLOL TARTRATE. [Concomitant]
     Active Substance: METOPROLOL TARTRATE
     Indication: HYPERTENSION
     Dates: start: 20140626
  13. CLA ADVANCE [Concomitant]
     Indication: DISSOCIATION
  14. ZOLPIDEM [Concomitant]
     Active Substance: ZOLPIDEM\ZOLPIDEM TARTRATE
     Indication: SLEEP DISORDER
     Dosage: 10 MG, AS NEEDED (USE HALF PILL OCCASIONALLY)
  15. POTASSIUM GLUCONATE [Concomitant]
     Active Substance: POTASSIUM GLUCONATE
     Indication: NEURALGIA
  16. BIOTIN [Concomitant]
     Active Substance: BIOTIN
     Indication: HAIR INJURY
  17. ASPIRIN. [Concomitant]
     Active Substance: ASPIRIN
     Indication: CARDIAC DISORDER
  18. NEXIUM [Suspect]
     Active Substance: ESOMEPRAZOLE MAGNESIUM
     Indication: GASTROOESOPHAGEAL REFLUX DISEASE
     Route: 048
     Dates: start: 20130419, end: 2014
  19. GRAPE SEED [Concomitant]
     Indication: CARDIAC DISORDER
     Dosage: UNK
  20. NEXIUM 24HR [Suspect]
     Active Substance: ESOMEPRAZOLE MAGNESIUM
     Indication: DYSPEPSIA
     Route: 048
     Dates: start: 201408
  21. LOSARTAN/HCTZ GT [Concomitant]
     Indication: HYPERTENSION
  22. D3 [Concomitant]
     Active Substance: 25-HYDROXYCHOLECALCIFEROL, 5-TRANS-
     Indication: IMMUNISATION
  23. ZANTAC [Concomitant]
     Active Substance: RANITIDINE HYDROCHLORIDE
     Indication: GASTROOESOPHAGEAL REFLUX DISEASE
     Dosage: 150 MG, AS NEEDED
  24. B-SUPER COMPLEX [Suspect]
     Active Substance: VITAMINS
     Indication: ENERGY INCREASED
     Dosage: EVERY DAY
     Route: 065
  25. LOSARTAN [Concomitant]
     Active Substance: LOSARTAN
     Indication: HYPERTENSION
  26. METHOTREXATE [Concomitant]
     Active Substance: METHOTREXATE
     Indication: RHEUMATOID ARTHRITIS
     Dates: start: 20140626
  27. FOLIC ACID. [Concomitant]
     Active Substance: FOLIC ACID
  28. OMEGA 3 [Concomitant]
     Active Substance: OMEGA-3 FATTY ACIDS
     Indication: CARDIAC DISORDER
  29. CALCIUM MAGNESIUM ZINC [Concomitant]
     Active Substance: CALCIUM\MAGNESIUM\ZINC
     Indication: PROPHYLAXIS
     Dosage: UNK, 1X/DAY (CALCIUM 333MG, MAGNESIUM 133MG, ZINC 5MG)
  30. MEGARED KRILL OIL [Concomitant]
     Indication: CARDIAC DISORDER
  31. SULFACETAMIDE SODIUM. [Concomitant]
     Active Substance: SULFACETAMIDE SODIUM
     Indication: RASH
     Dosage: 10 %, AS NEEDED

REACTIONS (2)
  - Rheumatoid arthritis [Not Recovered/Not Resolved]
  - Intentional product use issue [Not Recovered/Not Resolved]

NARRATIVE: CASE EVENT DATE: 20140509
